FAERS Safety Report 5310487-8 (Version None)
Quarter: 2007Q2

REPORT INFORMATION
  Report Type: 
  Country: None (occurrence: None)
  Receive Date: 20070427
  Receipt Date: 20070416
  Transmission Date: 20071010
  Serious: Yes (Other)
  Sender: FDA-Public Use
  Company Number: IE-PFIZER INC-2007031769

PATIENT
  Age: 43 Year
  Sex: Female
  Weight: 73 kg

DRUGS (1)
  1. LYRICA [Suspect]
     Dosage: TEXT:600MG
     Route: 048
     Dates: start: 20061001

REACTIONS (10)
  - ARTHRALGIA [None]
  - DRUG WITHDRAWAL SYNDROME [None]
  - HYPERHIDROSIS [None]
  - MYALGIA [None]
  - NAUSEA [None]
  - NEURALGIA [None]
  - OEDEMA PERIPHERAL [None]
  - PAIN [None]
  - VISION BLURRED [None]
  - WEIGHT INCREASED [None]
